FAERS Safety Report 24820721 (Version 2)
Quarter: 2025Q2

REPORT INFORMATION
  Report Type: Report from Study
  Country: US (occurrence: US)
  Receive Date: 20250108
  Receipt Date: 20250401
  Transmission Date: 20250717
  Serious: No
  Sender: SANOFI AVENTIS
  Company Number: US-SA-2024SA385189

PATIENT
  Age: 63 Year
  Sex: Female

DRUGS (3)
  1. VANDETANIB [Suspect]
     Active Substance: VANDETANIB
     Indication: Product used for unknown indication
     Dosage: 300 MG, QOD
     Route: 065
  2. VANDETANIB [Suspect]
     Active Substance: VANDETANIB
  3. VANDETANIB [Suspect]
     Active Substance: VANDETANIB

REACTIONS (2)
  - Diarrhoea [Unknown]
  - Product prescribing error [Unknown]
